FAERS Safety Report 14907608 (Version 1)
Quarter: 2018Q2

REPORT INFORMATION
  Report Type: Spontaneous
  Country: FR (occurrence: FR)
  Receive Date: 20180517
  Receipt Date: 20180517
  Transmission Date: 20180711
  Serious: Yes (Other)
  Sender: FDA-Public Use
  Company Number: FR-MERCK KGAA-2047982

PATIENT
  Age: 53 Year
  Sex: Female

DRUGS (1)
  1. NOVOTHYROX [Suspect]
     Active Substance: LEVOTHYROXINE SODIUM
     Indication: PRODUCT USED FOR UNKNOWN INDICATION

REACTIONS (49)
  - Burn oesophageal [None]
  - Feeling abnormal [None]
  - Muscular weakness [None]
  - Discomfort [None]
  - Nervousness [None]
  - Loss of personal independence in daily activities [None]
  - Arthralgia [None]
  - Weight increased [None]
  - Irritability [None]
  - Blood triglycerides increased [None]
  - Vitamin D decreased [None]
  - Low density lipoprotein increased [None]
  - Marital problem [None]
  - Headache [None]
  - Vertigo [None]
  - Antisocial behaviour [None]
  - Fatigue [None]
  - Emotional distress [None]
  - Vomiting [None]
  - Abdominal pain [None]
  - Musculoskeletal pain [None]
  - Loss of libido [None]
  - Diabetes mellitus [None]
  - Gastrooesophageal reflux disease [None]
  - Back pain [None]
  - Eye irritation [None]
  - Visual impairment [None]
  - Social problem [None]
  - Blood cholesterol increased [None]
  - High density lipoprotein increased [None]
  - Tendonitis [None]
  - Alopecia [None]
  - Memory impairment [None]
  - Polyuria [None]
  - Blood thyroid stimulating hormone increased [None]
  - Impaired work ability [None]
  - Pain in extremity [None]
  - Mental fatigue [None]
  - Temperature intolerance [None]
  - Gait disturbance [None]
  - Albumin urine present [None]
  - Thyroglobulin decreased [None]
  - Nausea [None]
  - Renal pain [None]
  - Impaired driving ability [None]
  - Muscle spasms [None]
  - Abdominal pain upper [None]
  - Colour blindness [None]
  - Pain [None]

NARRATIVE: CASE EVENT DATE: 20170427
